FAERS Safety Report 24275250 (Version 1)
Quarter: 2024Q3

REPORT INFORMATION
  Report Type: Spontaneous
  Country: GB (occurrence: GB)
  Receive Date: 20240903
  Receipt Date: 20240903
  Transmission Date: 20241016
  Serious: Yes (Disabling, Other)
  Sender: NOVO NORDISK
  Company Number: GB-MHRA-TPP41562309C6605233YC1724337926555

PATIENT
  Age: 46 Year
  Sex: Female
  Weight: 130 kg

DRUGS (11)
  1. RYBELSUS [Suspect]
     Active Substance: SEMAGLUTIDE
     Indication: Product used for unknown indication
     Dosage: 3 MG
     Route: 048
     Dates: start: 20240408, end: 20240521
  2. ATORVASTATIN [Concomitant]
     Active Substance: ATORVASTATIN
     Indication: Blood cholesterol abnormal
     Dosage: UNK, ONE TABLET TO BE TAKEN DAILY TO LOWER CHOLESTER...
     Dates: start: 20240619, end: 20240717
  3. FLUCLOXACILLIN [Concomitant]
     Active Substance: FLUCLOXACILLIN
     Indication: Ill-defined disorder
     Dosage: UNK, TAKE ONE CAPSULE FOUR TIMES DAILY FOR 7 DAYS
     Dates: start: 20240627, end: 20240704
  4. INSULIN GLARGINE [Concomitant]
     Active Substance: INSULIN GLARGINE
     Indication: Ill-defined disorder
     Dosage: UNK, TO BE ADMINISTERED BY SUBCUTANEOUS INJECTION AS...
     Route: 058
     Dates: start: 20240212
  5. GLUCORX FINEPOINT [Concomitant]
     Indication: Ill-defined disorder
     Dosage: UNK, TO BE USED AS DIRECTED
     Dates: start: 20240212
  6. LOSARTAN [Concomitant]
     Active Substance: LOSARTAN\LOSARTAN POTASSIUM
     Indication: Ill-defined disorder
     Dosage: UNK, ONE TABLET TO BE TAKEN ONCE A DAY  TO REDUCE BL...
     Dates: start: 20240319
  7. GLICLAZIDE [Concomitant]
     Active Substance: GLICLAZIDE
     Indication: Ill-defined disorder
     Dosage: UNK, TAKE TWO TABLET TWICE A DAY
     Dates: start: 20240426
  8. METFORMIN [Concomitant]
     Active Substance: METFORMIN HYDROCHLORIDE
     Indication: Ill-defined disorder
     Dosage: UNK, TWO TO BE TAKEN TWICE A DAY
     Dates: start: 20240426
  9. SHARPSAFE [Concomitant]
     Indication: Ill-defined disorder
     Dosage: UNK, TO BE USED AS DIRECTED FOR DISPOSAL FOR MEDICIN...
     Dates: start: 20240426
  10. TRUE METRIX [Concomitant]
     Indication: Ill-defined disorder
     Dosage: UNK, USE AS DIRECTED
     Dates: start: 20240426
  11. TRUEPLUS [Concomitant]
     Indication: Ill-defined disorder
     Dosage: UNK, USE AS DIRECTED
     Dates: start: 20240426

REACTIONS (3)
  - Maculopathy [Unknown]
  - Condition aggravated [Unknown]
  - Visual impairment [Recovering/Resolving]

NARRATIVE: CASE EVENT DATE: 20240408
